FAERS Safety Report 7005433-5 (Version None)
Quarter: 2010Q3

REPORT INFORMATION
  Report Type: 
  Country: None (occurrence: None)
  Receive Date: 20100921
  Receipt Date: 20100913
  Transmission Date: 20110219
  Serious: Yes (Death)
  Sender: FDA-Public Use
  Company Number: TR-ROCHE-726924

PATIENT
  Age: 50 Year
  Sex: Female
  Weight: 75 kg

DRUGS (3)
  1. BEVACIZUMAB [Suspect]
     Indication: RECTAL CANCER METASTATIC
     Dosage: FORM AND FREQUENCY:  NOT REPORTED.
     Route: 042
     Dates: start: 20100903, end: 20100913
  2. IRINOTECAN HCL [Concomitant]
     Indication: RECTAL CANCER METASTATIC
     Dosage: FREQUENCY: NOT REPORTED.
     Route: 042
     Dates: start: 20100525, end: 20100805
  3. FLUOROURACIL [Concomitant]
     Indication: RECTAL CANCER METASTATIC
     Dosage: FREQUENCY: NOT REPORTED.
     Route: 042
     Dates: start: 20100525, end: 20100805

REACTIONS (1)
  - CONVULSION [None]
